FAERS Safety Report 14388579 (Version 1)
Quarter: 2018Q1

REPORT INFORMATION
  Report Type: Spontaneous
  Country: US (occurrence: US)
  Receive Date: 20180115
  Receipt Date: 20180115
  Transmission Date: 20180509
  Serious: No
  Sender: FDA-Public Use
  Company Number: US-AMNEAL PHARMACEUTICALS-2017AMN00994

PATIENT
  Age: 72 Year
  Sex: Male
  Weight: 73.47 kg

DRUGS (1)
  1. DICLOFENAC SODIUM. [Suspect]
     Active Substance: DICLOFENAC SODIUM
     Indication: PAIN
     Dosage: 2 G, 4X/DAY
     Route: 061
     Dates: start: 201710

REACTIONS (1)
  - Administration site rash [Unknown]

NARRATIVE: CASE EVENT DATE: 201710
